FAERS Safety Report 9704435 (Version 1)
Quarter: 2013Q4

REPORT INFORMATION
  Report Type: Spontaneous
  Country: GB (occurrence: GB)
  Receive Date: 20131122
  Receipt Date: 20131122
  Transmission Date: 20140711
  Serious: Yes (Other)
  Sender: FDA-Public Use
  Company Number: PHHY2013GB131532

PATIENT
  Age: 71 Year
  Sex: Male
  Weight: 75 kg

DRUGS (1)
  1. SIMVASTATIN [Suspect]
     Indication: PROPHYLAXIS
     Dosage: 20 MG, EIGHT WEEK COURSE
     Route: 048
     Dates: start: 201208

REACTIONS (1)
  - Dysphagia [Recovered/Resolved]
